FAERS Safety Report 20630536 (Version 2)
Quarter: 2022Q1

REPORT INFORMATION
  Report Type: Spontaneous
  Country: US (occurrence: US)
  Receive Date: 20220324
  Receipt Date: 20220329
  Transmission Date: 20220423
  Serious: Yes (Life-Threatening, Hospitalization, Other)
  Sender: FDA-Public Use
  Company Number: US-SUN PHARMACEUTICAL INDUSTRIES LTD-2022R1-330393

PATIENT
  Age: 17 Year
  Sex: Male
  Weight: 65 kg

DRUGS (1)
  1. IBUPROFEN [Suspect]
     Active Substance: IBUPROFEN
     Indication: Product used for unknown indication
     Dosage: UNK
     Route: 065

REACTIONS (10)
  - Intentional overdose [Unknown]
  - Drug level increased [Unknown]
  - Lactic acidosis [Unknown]
  - Multiple organ dysfunction syndrome [Unknown]
  - Neurological decompensation [Unknown]
  - Haemodynamic instability [Unknown]
  - Somnolence [Unknown]
  - Hypotension [Recovered/Resolved]
  - Acute kidney injury [Unknown]
  - Suicidal ideation [Unknown]
